FAERS Safety Report 4730062-3 (Version None)
Quarter: 2005Q3

REPORT INFORMATION
  Report Type: 
  Country: None (occurrence: None)
  Receive Date: 20050801
  Receipt Date: 20050720
  Transmission Date: 20060218
  Serious: Yes (Life-Threatening, Hospitalization, Other)
  Sender: FDA-Public Use
  Company Number: DE-JNJFOC-20050202814

PATIENT
  Age: 60 Year
  Sex: Female

DRUGS (3)
  1. REMICADE [Suspect]
     Indication: RHEUMATOID ARTHRITIS
     Route: 042
  2. ETANERCEPT [Suspect]
     Indication: DRUG USE FOR UNKNOWN INDICATION
     Dosage: 25MG/ 75MG
     Route: 065
     Dates: start: 20040501, end: 20040501
  3. HUMIRA [Suspect]
     Indication: DRUG USE FOR UNKNOWN INDICATION

REACTIONS (4)
  - BRAIN ABSCESS [None]
  - CEREBRAL INFARCTION [None]
  - LISTERIOSIS [None]
  - RHEUMATOID ARTHRITIS [None]
